FAERS Safety Report 20200523 (Version 1)
Quarter: 2021Q4

REPORT INFORMATION
  Report Type: Report from Study
  Country: US (occurrence: US)
  Receive Date: 20211217
  Receipt Date: 20211217
  Transmission Date: 20220303
  Serious: Yes (Death, Hospitalization)
  Sender: FDA-Public Use
  Company Number: US-SAOL THERAPEUTICS-2021SAO00418

PATIENT
  Sex: Female
  Weight: 61.224 kg

DRUGS (1)
  1. LIORESAL [Suspect]
     Active Substance: BACLOFEN
     Dosage: UNK UNK, \DAY
     Route: 037

REACTIONS (2)
  - Sepsis [Fatal]
  - Implant site infection [Fatal]
